FAERS Safety Report 8429564-8 (Version None)
Quarter: 2012Q2

REPORT INFORMATION
  Report Type: 
  Country: None (occurrence: None)
  Receive Date: 20120604
  Receipt Date: 20120522
  Transmission Date: 20120825
  Serious: Yes (Hospitalization)
  Sender: FDA-Public Use
  Company Number: IT-2012-2180

PATIENT
  Age: 79 Year
  Sex: Female

DRUGS (2)
  1. NAVELBINE [Suspect]
     Indication: BREAST CANCER
     Dosage: 2 MG IV
     Route: 042
     Dates: start: 20120321, end: 20120321
  2. NALOXONE [Suspect]
     Indication: PAIN
     Dosage: 5 MG TID
     Dates: start: 20120321, end: 20120328

REACTIONS (2)
  - VERTIGO [None]
  - BLOOD PRESSURE INCREASED [None]
